FAERS Safety Report 9521424 (Version 1)
Quarter: 2013Q3

REPORT INFORMATION
  Report Type: Spontaneous
  Country: US (occurrence: None)
  Receive Date: 20130911
  Receipt Date: 20130911
  Transmission Date: 20140515
  Serious: Yes (Other)
  Sender: FDA-Public Use
  Company Number: AUR-APL-2013-07436

PATIENT
  Age: 60 Year
  Sex: Female

DRUGS (10)
  1. METFORMIN (METFORMIN) [Suspect]
     Indication: DIABETES MELLITUS
     Dosage: 2000MG, (2000MG, 1 IN 1D) ORAL
     Route: 048
     Dates: start: 2005
  2. ATENOLOL (ATENOLOL) [Suspect]
     Indication: MIGRAINE
     Dosage: 50MG (50 MG, 1 IN 1 D) ORAL
     Route: 048
  3. LISINOPRIL (LISINOPRIL) [Suspect]
     Indication: PRODUCT USED FOR UNKNOWN INDICATION
     Dosage: (50MG), ORAL
     Route: 048
     Dates: start: 2006
  4. NEXIUM [Suspect]
     Indication: GASTROOESOPHAGEAL REFLUX DISEASE
     Dosage: 80MG (40MG, 2 IN 1 D), ORAL
     Route: 048
     Dates: start: 2002
  5. BYETTA (EXENATIDE) PEN , DISPOSABLE [Suspect]
     Indication: DIABETES MELLITUS
     Dosage: 2 DOSAGE FORMS (1 DOSAGE FORMS, 2 IN 1D) SUBCUTANEOUS
     Route: 058
     Dates: start: 2010
  6. CRESTOR (ROSUVASTATIN CALCIUM) [Suspect]
     Indication: BLOOD CHOLESTEROL
     Dosage: 10MG (10MG, 1 IN 1D) ORAL
     Route: 048
  7. ZANTAC (RANITIDINE HYDROCHORIDE) [Concomitant]
  8. ASPIRIN (ACETYLSALICYLIC ACID) [Concomitant]
  9. LOSARTAN POTASSIUM (LOSARTAN POTASSIUM) [Concomitant]
  10. LASIX (FUROSEMIDE) [Concomitant]

REACTIONS (3)
  - Blood pressure increased [None]
  - Mycosis fungoides [None]
  - Hernia [None]
